FAERS Safety Report 19763190 (Version 1)
Quarter: 2021Q3

REPORT INFORMATION
  Report Type: Spontaneous
  Country: PT (occurrence: PT)
  Receive Date: 20210830
  Receipt Date: 20210830
  Transmission Date: 20211014
  Serious: Yes (Other)
  Sender: FDA-Public Use
  Company Number: PT-MYLANLABS-2021M1055944

PATIENT
  Age: 86 Year
  Sex: Female
  Weight: 58 kg

DRUGS (2)
  1. DIOVAN [Concomitant]
     Active Substance: VALSARTAN
     Dosage: 80 MILLIGRAM
     Route: 048
  2. BRUFEN [Suspect]
     Active Substance: IBUPROFEN
     Indication: COVID-19 IMMUNISATION
     Dosage: 1200 MILLIGRAM, QD (1 COMPRIMIDO AP?S AS 3 REFEI??ES PRINCIPAIS)
     Route: 048
     Dates: start: 20210226, end: 20210227

REACTIONS (2)
  - Face oedema [Unknown]
  - Off label use [Unknown]

NARRATIVE: CASE EVENT DATE: 20210227
